FAERS Safety Report 13397114 (Version 1)
Quarter: 2017Q2

REPORT INFORMATION
  Report Type: Spontaneous
  Country: FR (occurrence: FR)
  Receive Date: 20170403
  Receipt Date: 20170403
  Transmission Date: 20170830
  Serious: Yes (Life-Threatening, Hospitalization)
  Sender: FDA-Public Use
  Company Number: FR-SA-2017SA054230

PATIENT
  Age: 77 Year
  Sex: Female

DRUGS (23)
  1. ESIDREX [Concomitant]
     Active Substance: HYDROCHLOROTHIAZIDE
     Route: 065
     Dates: start: 2015
  2. FOLINIC ACID [Concomitant]
     Active Substance: LEUCOVORIN
     Indication: COLORECTAL CANCER METASTATIC
     Route: 042
     Dates: start: 20160211, end: 20160211
  3. OXALIPLATIN. [Suspect]
     Active Substance: OXALIPLATIN
     Indication: COLORECTAL CANCER METASTATIC
     Route: 042
     Dates: start: 20160211, end: 20160211
  4. ATENOLOL. [Concomitant]
     Active Substance: ATENOLOL
     Indication: MYOCARDIAL INFARCTION
     Route: 065
     Dates: start: 20160126, end: 20160226
  5. BISOPROLOL [Concomitant]
     Active Substance: BISOPROLOL
     Route: 065
     Dates: start: 2015
  6. FOLINIC ACID [Concomitant]
     Active Substance: LEUCOVORIN
     Indication: COLORECTAL CANCER METASTATIC
     Route: 042
     Dates: start: 20160114, end: 20160114
  7. LORAZEPAM. [Concomitant]
     Active Substance: LORAZEPAM
     Route: 065
     Dates: start: 2005
  8. SMECTA [Concomitant]
     Active Substance: MONTMORILLONITE
     Route: 065
     Dates: start: 20160126, end: 20160226
  9. BRILIQUE [Concomitant]
     Active Substance: TICAGRELOR
     Indication: MYOCARDIAL INFARCTION
     Route: 065
     Dates: start: 20160126, end: 20160226
  10. DIFFU K [Concomitant]
     Active Substance: POTASSIUM CHLORIDE
     Route: 065
     Dates: start: 2015
  11. TARDYFERON [Concomitant]
     Active Substance: FERROUS SULFATE
     Route: 065
     Dates: start: 20160126, end: 20160226
  12. ATORVASTATIN [Concomitant]
     Active Substance: ATORVASTATIN
     Indication: MYOCARDIAL INFARCTION
     Route: 065
     Dates: start: 20160126, end: 20160226
  13. BEVACIZUMAB [Concomitant]
     Active Substance: BEVACIZUMAB
     Indication: COLORECTAL CANCER METASTATIC
     Route: 042
     Dates: start: 20160211, end: 20160211
  14. VALSARTAN. [Concomitant]
     Active Substance: VALSARTAN
     Route: 065
     Dates: start: 2015
  15. KARDEGIC [Concomitant]
     Active Substance: ASPIRIN LYSINE
     Route: 065
     Dates: start: 2015
  16. FLUOROURACIL. [Concomitant]
     Active Substance: FLUOROURACIL
     Indication: COLORECTAL CANCER METASTATIC
     Route: 042
     Dates: start: 20160114, end: 20160114
  17. FLUOROURACIL. [Concomitant]
     Active Substance: FLUOROURACIL
     Indication: COLORECTAL CANCER METASTATIC
     Route: 042
     Dates: start: 20160211, end: 20160211
  18. OXALIPLATIN. [Suspect]
     Active Substance: OXALIPLATIN
     Indication: COLORECTAL CANCER METASTATIC
     Route: 042
     Dates: start: 20160114, end: 20160114
  19. ESOMEPRAZOLE [Concomitant]
     Active Substance: ESOMEPRAZOLE
     Route: 065
     Dates: start: 2001
  20. LOPERAMIDE [Concomitant]
     Active Substance: LOPERAMIDE
     Route: 065
     Dates: start: 20160126, end: 20160226
  21. TARDYFERON [Concomitant]
     Active Substance: FERROUS SULFATE
     Route: 065
     Dates: start: 2001
  22. PERINDOPRIL [Concomitant]
     Active Substance: PERINDOPRIL
     Indication: MYOCARDIAL INFARCTION
     Route: 065
     Dates: start: 20160126, end: 20160226
  23. BEVACIZUMAB [Concomitant]
     Active Substance: BEVACIZUMAB
     Indication: COLORECTAL CANCER METASTATIC
     Route: 042
     Dates: start: 20160114, end: 20160114

REACTIONS (4)
  - Myocardial infarction [Recovered/Resolved]
  - Chest pain [Unknown]
  - Bundle branch block left [Unknown]
  - Discomfort [Unknown]

NARRATIVE: CASE EVENT DATE: 20160120
